FAERS Safety Report 8604156 (Version 5)
Quarter: 2013Q4

REPORT INFORMATION
  Report Type: Spontaneous
  Country: US (occurrence: US)
  Receive Date: 20120608
  Receipt Date: 20131009
  Transmission Date: 20140711
  Serious: Yes (Hospitalization, Other)
  Sender: FDA-Public Use
  Company Number: US-PFIZER INC-2012135923

PATIENT
  Age: 64 Year
  Sex: Female
  Weight: 50 kg

DRUGS (7)
  1. XALKORI [Suspect]
     Indication: LUNG NEOPLASM MALIGNANT
     Dosage: 250 MG, 2X/DAY
     Route: 048
     Dates: start: 20120303, end: 20120309
  2. XALKORI [Suspect]
     Dosage: 400 MG, ONCE A DAY
     Route: 048
     Dates: start: 20120310
  3. XALKORI [Suspect]
     Dosage: 200 MG, 2X/DAY
     Dates: start: 20130318, end: 20130916
  4. LEVOTHYROXINE [Concomitant]
     Dosage: 0.25 MG, ONCE A DAY
  5. BENICAR [Concomitant]
     Dosage: 20 MG, UNK
  6. ATENOLOL [Concomitant]
     Dosage: 100 MG, UNK
  7. ALPRAZOLAM [Concomitant]
     Dosage: 0.5 MG, UNK

REACTIONS (14)
  - Blood pressure fluctuation [Recovered/Resolved]
  - Pyrexia [Recovered/Resolved]
  - Malaise [Recovered/Resolved]
  - Pancreatitis [Unknown]
  - Vision blurred [Unknown]
  - Oesophageal pain [Unknown]
  - Diarrhoea [Not Recovered/Not Resolved]
  - Fatigue [Recovering/Resolving]
  - Oedema [Unknown]
  - Hepatobiliary scan abnormal [Unknown]
  - Nausea [Unknown]
  - Tremor [Unknown]
  - Disease progression [Unknown]
  - Lung neoplasm malignant [Unknown]
